FAERS Safety Report 16040215 (Version 1)
Quarter: 2019Q2

REPORT INFORMATION
  Report Type: Spontaneous
  Country: US (occurrence: US)
  Receive Date: 20190305
  Receipt Date: 20190305
  Transmission Date: 20190711
  Serious: Yes (Life-Threatening)
  Sender: FDA-Public Use
  Company Number: None

PATIENT
  Age: 54 Year
  Sex: Male
  Weight: 108 kg

DRUGS (11)
  1. VITAMIN D NOS [Concomitant]
     Active Substance: VITAMIN D NOS
  2. CRESTOR [Concomitant]
     Active Substance: ROSUVASTATIN CALCIUM
  3. MILK THISTLE [Concomitant]
     Active Substance: DIETARY SUPPLEMENT\HERBALS\MILK THISTLE
  4. GINGKO [Concomitant]
     Active Substance: GINKGO
  5. PREDNISONE. [Concomitant]
     Active Substance: PREDNISONE
  6. ALENDRONATE [Concomitant]
     Active Substance: ALENDRONATE SODIUM
  7. DDAVP [Suspect]
     Active Substance: DESMOPRESSIN ACETATE
     Indication: NEUROGENIC BLADDER
     Dosage: ?          QUANTITY:1 DROP(S);?
     Route: 045
     Dates: start: 19920512
  8. SYNTHROID [Concomitant]
     Active Substance: LEVOTHYROXINE SODIUM
  9. ACTOS [Concomitant]
     Active Substance: PIOGLITAZONE HYDROCHLORIDE
  10. ACIA [Concomitant]
  11. CALCIUM [Concomitant]
     Active Substance: CALCIUM

REACTIONS (3)
  - Head discomfort [None]
  - Nasal discomfort [None]
  - Ocular discomfort [None]

NARRATIVE: CASE EVENT DATE: 20190305
